FAERS Safety Report 10612678 (Version 1)
Quarter: 2014Q4

REPORT INFORMATION
  Report Type: Spontaneous
  Country: IT (occurrence: IT)
  Receive Date: 20141127
  Receipt Date: 20141127
  Transmission Date: 20150529
  Serious: Yes (Other)
  Sender: FDA-Public Use
  Company Number: IT-RANBAXY-2014RR-88841

PATIENT
  Age: 59 Year
  Sex: Male

DRUGS (3)
  1. BIPERIDENE CHLORHYDRATE [Suspect]
     Active Substance: BIPERIDEN
     Indication: MENTAL RETARDATION
     Dosage: UNK
     Route: 065
  2. LORAZEPAM. [Suspect]
     Active Substance: LORAZEPAM
     Indication: MENTAL RETARDATION
     Dosage: UNK
     Route: 065
  3. OLANZAPINE. [Suspect]
     Active Substance: OLANZAPINE
     Indication: MENTAL RETARDATION
     Dosage: UNK
     Route: 065

REACTIONS (6)
  - Peritonitis [Recovering/Resolving]
  - Megacolon [Recovering/Resolving]
  - Acute abdomen [Recovering/Resolving]
  - Large intestine perforation [Recovering/Resolving]
  - Abdominal distension [Recovering/Resolving]
  - Faecaloma [Recovering/Resolving]
